FAERS Safety Report 6073107-3 (Version None)
Quarter: 2009Q1

REPORT INFORMATION
  Report Type: 
  Country: None (occurrence: None)
  Receive Date: 20090206
  Receipt Date: 20090129
  Transmission Date: 20090719
  Serious: Yes (Other)
  Sender: FDA-Public Use
  Company Number: GXKR2009IT00776

PATIENT
  Age: 61 Year
  Sex: Female

DRUGS (4)
  1. TRAMADOL HCL [Suspect]
     Indication: PROCEDURAL PAIN
     Dosage: 1700 MG, DAILY
  2. LORAZEPAM [Concomitant]
  3. AMITRIPTYLINE HYDROCHLORIDE [Concomitant]
  4. BETA BLOCKING AGENTS (NO INGREDIENTS/SUBSTANCES) [Concomitant]

REACTIONS (10)
  - AGITATION [None]
  - ANOREXIA [None]
  - ANXIETY [None]
  - DRUG DEPENDENCE [None]
  - HALLUCINATION [None]
  - HYPERHIDROSIS [None]
  - PALPITATIONS [None]
  - PARAESTHESIA [None]
  - TREMOR [None]
  - WITHDRAWAL SYNDROME [None]
